FAERS Safety Report 24560040 (Version 1)
Quarter: 2024Q4

REPORT INFORMATION
  Report Type: Spontaneous
  Country: US (occurrence: US)
  Receive Date: 20241029
  Receipt Date: 20241029
  Transmission Date: 20250115
  Serious: No
  Sender: ABBVIE
  Company Number: US-ABBVIE-5974958

PATIENT
  Sex: Female
  Weight: 49.89 kg

DRUGS (2)
  1. SYNTHROID [Suspect]
     Active Substance: LEVOTHYROXINE SODIUM
     Indication: Thyroid disorder
     Dosage: FORM STRENGTH: 50 MICROGRAM
     Route: 048
     Dates: start: 1999
  2. FOSAMAX [Suspect]
     Active Substance: ALENDRONATE SODIUM
     Indication: Osteoporosis
     Route: 065

REACTIONS (7)
  - Dysphagia [Recovered/Resolved]
  - Anxiety [Not Recovered/Not Resolved]
  - Abdominal pain [Recovered/Resolved]
  - Stress [Not Recovered/Not Resolved]
  - Osteoporosis [Not Recovered/Not Resolved]
  - Off label use [Unknown]
  - Product expiration date issue [Not Recovered/Not Resolved]

NARRATIVE: CASE EVENT DATE: 20080101
